FAERS Safety Report 5226619-6 (Version None)
Quarter: 2007Q1

REPORT INFORMATION
  Report Type: 
  Country: None (occurrence: None)
  Receive Date: 20070201
  Receipt Date: 20070123
  Transmission Date: 20070707
  Serious: Yes (Hospitalization)
  Sender: FDA-Public Use
  Company Number: FR-PFIZER INC-2007007213

PATIENT
  Sex: Female
  Weight: 56 kg

DRUGS (1)
  1. SU-011,248 [Suspect]
     Indication: BRONCHIOLOALVEOLAR CARCINOMA
     Route: 048
     Dates: start: 20070116, end: 20070117

REACTIONS (1)
  - RASH SCARLATINIFORM [None]
